FAERS Safety Report 9788225 (Version 1)
Quarter: 2013Q4

REPORT INFORMATION
  Report Type: Spontaneous
  Country: ES (occurrence: ES)
  Receive Date: 20131230
  Receipt Date: 20131230
  Transmission Date: 20140711
  Serious: Yes (Other)
  Sender: FDA-Public Use
  Company Number: PHHY2013ES152158

PATIENT
  Age: 4 Year
  Sex: Female

DRUGS (1)
  1. SOMATROPIN [Suspect]
     Indication: BODY HEIGHT BELOW NORMAL
     Dosage: 0.035 UG/KG/DAY

REACTIONS (4)
  - Osteochondrosis [Unknown]
  - Hip deformity [Unknown]
  - Arthralgia [Unknown]
  - Gait disturbance [Unknown]
